FAERS Safety Report 8311643-7 (Version None)
Quarter: 2012Q2

REPORT INFORMATION
  Report Type: 
  Country: None (occurrence: None)
  Receive Date: 20120425
  Receipt Date: 20120409
  Transmission Date: 20120825
  Serious: No
  Sender: FDA-Public Use
  Company Number: US-BAYER-2012-034440

PATIENT
  Age: 18 Year
  Sex: Female

DRUGS (2)
  1. BEYAZ [Suspect]
     Indication: ACNE
  2. BEYAZ [Suspect]
     Indication: CONTRACEPTION
     Dosage: UNK
     Dates: start: 20120101

REACTIONS (1)
  - POLYMENORRHOEA [None]
